FAERS Safety Report 16978879 (Version 1)
Quarter: 2019Q4

REPORT INFORMATION
  Report Type: Spontaneous
  Country: US (occurrence: US)
  Receive Date: 20191029
  Receipt Date: 20191029
  Transmission Date: 20200122
  Serious: No
  Sender: FDA-Public Use
  Company Number: None

PATIENT
  Age: 46 Year
  Sex: Male
  Weight: 79.2 kg

DRUGS (2)
  1. TECFIDERA [Suspect]
     Active Substance: DIMETHYL FUMARATE
     Indication: MULTIPLE SCLEROSIS
     Dosage: ?          QUANTITY:1 CAPSULE(S);?
     Route: 048
     Dates: start: 20190726, end: 20190814
  2. VITA FUSION [Concomitant]

REACTIONS (6)
  - Vomiting [None]
  - Pruritus [None]
  - Urticaria [None]
  - Abdominal pain upper [None]
  - Diarrhoea [None]
  - Hepatic enzyme increased [None]

NARRATIVE: CASE EVENT DATE: 20190816
